FAERS Safety Report 24878345 (Version 1)
Quarter: 2025Q1

REPORT INFORMATION
  Report Type: Spontaneous
  Country: IT (occurrence: IT)
  Receive Date: 20250123
  Receipt Date: 20250123
  Transmission Date: 20250408
  Serious: Yes (Other)
  Sender: MERCK
  Company Number: IT-009507513-2501ITA005835

PATIENT
  Age: 28 Year
  Sex: Female

DRUGS (2)
  1. PEMBROLIZUMAB [Suspect]
     Active Substance: PEMBROLIZUMAB
  2. AXITINIB [Suspect]
     Active Substance: AXITINIB

REACTIONS (1)
  - Renal cell carcinoma recurrent [Unknown]
